FAERS Safety Report 8182925-7 (Version None)
Quarter: 2012Q1

REPORT INFORMATION
  Report Type: 
  Country: None (occurrence: None)
  Receive Date: 20120305
  Receipt Date: 20120229
  Transmission Date: 20120608
  Serious: Yes (Other)
  Sender: FDA-Public Use
  Company Number: CH-AMGEN-CHESP2012013066

PATIENT
  Age: 45 Year
  Sex: Female
  Weight: 65 kg

DRUGS (4)
  1. TAXOTERE [Suspect]
     Indication: BREAST CANCER STAGE III
     Dosage: UNK UNK, ONE TIME DOSE
     Route: 042
     Dates: start: 20120104, end: 20120104
  2. DOXORUBICIN HCL [Concomitant]
     Indication: BREAST CANCER STAGE III
     Dosage: 88 DF, ONE TIME DOSE
     Route: 042
     Dates: start: 20120104, end: 20120104
  3. NEULASTA [Suspect]
     Indication: CHEMOTHERAPY
     Dosage: 6 MG, QD
     Route: 058
     Dates: start: 20120105, end: 20120105
  4. CYCLOPHOSPHAMIDE [Suspect]
     Indication: BREAST CANCER STAGE III
     Dosage: 875 UNK, ONE TIME DOSE
     Route: 042
     Dates: start: 20120104, end: 20120104

REACTIONS (3)
  - FACE OEDEMA [None]
  - PERIORBITAL OEDEMA [None]
  - OEDEMA PERIPHERAL [None]
